FAERS Safety Report 23752334 (Version 1)
Quarter: 2024Q2

REPORT INFORMATION
  Report Type: Spontaneous
  Country: US (occurrence: US)
  Receive Date: 20240417
  Receipt Date: 20240417
  Transmission Date: 20240715
  Serious: No
  Sender: FDA-Public Use
  Company Number: US-TEVA-VS-3178082

PATIENT

DRUGS (1)
  1. CONCERTA [Suspect]
     Active Substance: METHYLPHENIDATE HYDROCHLORIDE
     Indication: Product used for unknown indication
     Route: 065

REACTIONS (8)
  - Migraine [Unknown]
  - Tremor [Unknown]
  - Anger [Unknown]
  - Panic reaction [Unknown]
  - Mania [Unknown]
  - Nausea [Unknown]
  - Hyperhidrosis [Unknown]
  - Mood swings [Unknown]
